FAERS Safety Report 15757150 (Version 2)
Quarter: 2019Q1

REPORT INFORMATION
  Report Type: Spontaneous
  Country: AT (occurrence: AT)
  Receive Date: 20181224
  Receipt Date: 20190211
  Transmission Date: 20190417
  Serious: Yes (Hospitalization)
  Sender: FDA-Public Use
  Company Number: AT-UCBSA-2018055544

PATIENT
  Age: 47 Year
  Sex: Female
  Weight: 58 kg

DRUGS (3)
  1. BRIVIACT [Suspect]
     Active Substance: BRIVARACETAM
     Indication: EPILEPSY
     Dosage: 25 MG
     Route: 048
     Dates: start: 20181113, end: 2018
  2. BRIVIACT [Suspect]
     Active Substance: BRIVARACETAM
     Indication: DEPRESSION
     Dosage: 25 MG, 2X/DAY (BID)
     Route: 048
     Dates: end: 20190130
  3. ZONISAMIDE. [Concomitant]
     Active Substance: ZONISAMIDE
     Indication: EPILEPSY
     Dosage: 25 MG, ONCE DAILY (QD)
     Route: 048
     Dates: start: 20170928

REACTIONS (3)
  - Pharyngitis [Recovering/Resolving]
  - Stomatitis [Recovering/Resolving]
  - Genital blister [Recovered/Resolved]

NARRATIVE: CASE EVENT DATE: 201811
